FAERS Safety Report 7490811-0 (Version None)
Quarter: 2011Q2

REPORT INFORMATION
  Report Type: 
  Country: None (occurrence: None)
  Receive Date: 20110519
  Receipt Date: 20110510
  Transmission Date: 20111010
  Serious: Yes (Hospitalization)
  Sender: FDA-Public Use
  Company Number: US-NOVOPROD-327936

PATIENT
  Age: 52 Year
  Sex: Male
  Weight: 97.052 kg

DRUGS (3)
  1. NOVOLIN 70/30 [Suspect]
     Indication: TYPE 1 DIABETES MELLITUS
     Dosage: 45 U AM, 35 U PM
     Route: 058
     Dates: start: 20020101
  2. LEVETIRACETAM [Concomitant]
     Indication: CONVULSION
     Dosage: 500 MG, BID
     Route: 048
  3. TOPAMAX [Concomitant]
     Indication: CONVULSION
     Dosage: 100 MG, BID
     Route: 048

REACTIONS (2)
  - DIABETIC COMA [None]
  - PETIT MAL EPILEPSY [None]
